FAERS Safety Report 8154686 (Version 6)
Quarter: 2013Q4

REPORT INFORMATION
  Report Type: Spontaneous
  Country: US (occurrence: US)
  Receive Date: 20110923
  Receipt Date: 20131023
  Transmission Date: 20140711
  Serious: Yes (Hospitalization)
  Sender: FDA-Public Use
  Company Number: US-GLAXOSMITHKLINE-A0944789A

PATIENT
  Age: 56 Year
  Sex: Female

DRUGS (9)
  1. LAMICTAL [Suspect]
     Indication: CONVULSION
     Dosage: 100MG TWICE PER DAY
     Route: 048
     Dates: start: 200707
  2. PHENOBARBITAL [Suspect]
     Indication: CONVULSION
     Route: 065
  3. METFORMIN [Suspect]
     Indication: DIABETES MELLITUS
     Dosage: 500MG PER DAY
     Route: 048
     Dates: start: 201112
  4. DILANTIN [Suspect]
     Indication: CONVULSION
     Dosage: 500MG PER DAY
     Route: 048
     Dates: start: 200707
  5. LYRICA [Suspect]
     Indication: CONVULSION
     Dosage: 75MG PER DAY
     Route: 048
     Dates: start: 200906
  6. LEVOTHYROXINE [Concomitant]
     Dosage: 100MCG PER DAY
  7. LISINOPRIL [Concomitant]
     Dosage: 1TAB PER DAY
  8. PRAVASTATIN [Concomitant]
     Dosage: 200MG AT NIGHT
  9. AMLODIPINE [Concomitant]
     Dosage: 1TAB AT NIGHT

REACTIONS (5)
  - Convulsion [Recovered/Resolved]
  - Fatigue [Recovered/Resolved]
  - Speech disorder [Recovered/Resolved]
  - Hospitalisation [Recovered/Resolved]
  - Treatment noncompliance [Recovered/Resolved]
